FAERS Safety Report 15917183 (Version 23)
Quarter: 2021Q3

REPORT INFORMATION
  Report Type: Report from Study
  Country: GB (occurrence: GB)
  Receive Date: 20190205
  Receipt Date: 20210915
  Transmission Date: 20211014
  Serious: Yes (Death, Hospitalization, Other)
  Sender: FDA-Public Use
  Company Number: GB-ACCORD-104538

PATIENT
  Age: 67 Year
  Sex: Female

DRUGS (11)
  1. HYALURONIDASE/HYALURONIDASE SODIUM [Suspect]
     Active Substance: HYALURONIDASE
     Indication: HER2 POSITIVE BREAST CANCER
     Dosage: 600 MILLIGRAM, EVERY 3 WEEKS
     Route: 058
     Dates: start: 20151124, end: 20151221
  2. TAMOXIFEN [Suspect]
     Active Substance: TAMOXIFEN
     Indication: BREAST CANCER METASTATIC
     Dosage: 20 MILLIGRAM, QD
     Route: 048
     Dates: start: 20160712, end: 20160802
  3. ENOXAPARIN [Concomitant]
     Active Substance: ENOXAPARIN
     Indication: EMBOLISM VENOUS
     Dosage: PREVENTION OF VENOUS THROMBOEMBOLISM 06?JAN?2016, 20 MILLIGRAM, QD
     Route: 058
     Dates: start: 20160104, end: 20160106
  4. ADCAL?D3 [Concomitant]
     Active Substance: CALCIUM CARBONATE\CHOLECALCIFEROL
     Indication: PRODUCT USED FOR UNKNOWN INDICATION
     Dosage: 1.5 G, QD
     Route: 048
     Dates: start: 20101221, end: 201511
  5. EXEMESTANE. [Suspect]
     Active Substance: EXEMESTANE
     Indication: BREAST CANCER METASTATIC
     Dosage: 25 MILLIGRAM, QD
     Route: 048
     Dates: start: 20160531, end: 20160610
  6. PACLITAXEL/PACLITAXEL LIPOSOME [Suspect]
     Active Substance: PACLITAXEL
     Indication: BREAST CANCER METASTATIC
     Dosage: 141 MILLIGRAM, QMO
     Route: 042
     Dates: start: 20151124, end: 20151221
  7. TRASTUZUMAB. [Suspect]
     Active Substance: TRASTUZUMAB
     Indication: BREAST CANCER METASTATIC
     Dosage: 600 MILLIGRAM, Q3WK
     Route: 058
     Dates: start: 20151124, end: 20151221
  8. CAPECITABINE. [Suspect]
     Active Substance: CAPECITABINE
     Indication: BREAST CANCER METASTATIC
     Dosage: 1500 MG, 1300 MG FROM 13?DEC?2016 TO 16?DEC?2016
     Route: 048
     Dates: start: 20161122, end: 20161213
  9. ADALIMUMAB [Suspect]
     Active Substance: ADALIMUMAB
     Indication: PRODUCT USED FOR UNKNOWN INDICATION
     Dosage: 40 MG, Q2W
     Route: 058
     Dates: start: 20151124
  10. OMEPRAZOLE. [Concomitant]
     Active Substance: OMEPRAZOLE
     Indication: PRODUCT USED FOR UNKNOWN INDICATION
     Dosage: 20 MILLIGRAM, QD
     Route: 048
     Dates: end: 20170530
  11. TAMOXIFEN [Suspect]
     Active Substance: TAMOXIFEN
     Indication: HER2 POSITIVE BREAST CANCER
     Dosage: 2MG/ML,600 MILLIGRAM/3WEEK
     Dates: start: 20160712, end: 20160802

REACTIONS (34)
  - Ascites [Not Recovered/Not Resolved]
  - Blood glucose increased [Recovered/Resolved]
  - Blood phosphorus increased [Recovered/Resolved]
  - Blood urea increased [Unknown]
  - Hypoalbuminaemia [Recovered/Resolved]
  - Blood bilirubin increased [Recovered/Resolved]
  - Pain [Recovered/Resolved]
  - Cerebral haemorrhage [Recovered/Resolved with Sequelae]
  - Blood alkaline phosphatase increased [Recovered/Resolved with Sequelae]
  - Urinary tract infection [Unknown]
  - Nausea [Recovered/Resolved]
  - Death [Fatal]
  - Aspartate aminotransferase increased [Recovered/Resolved]
  - Blood creatinine increased [Recovered/Resolved]
  - Alanine aminotransferase increased [Recovered/Resolved]
  - Sensory disturbance [Not Recovered/Not Resolved]
  - Sensory loss [Not Recovered/Not Resolved]
  - Balance disorder [Not Recovered/Not Resolved]
  - Hypokalaemia [Recovered/Resolved]
  - Constipation [Recovered/Resolved]
  - C-reactive protein increased [Unknown]
  - White blood cell count increased [Recovered/Resolved]
  - Diarrhoea [Recovered/Resolved]
  - Neutrophil count increased [Recovered/Resolved]
  - Lymphopenia [Recovered/Resolved with Sequelae]
  - Hypernatraemia [Recovered/Resolved]
  - Dyspnoea [Recovered/Resolved]
  - Vomiting [Recovered/Resolved]
  - Hypertension [Recovered/Resolved with Sequelae]
  - Asthenia [Not Recovered/Not Resolved]
  - Agitation [Recovered/Resolved]
  - Protein total decreased [Recovered/Resolved]
  - Fatigue [Recovered/Resolved]
  - Pyrexia [Recovered/Resolved]

NARRATIVE: CASE EVENT DATE: 20151124
